FAERS Safety Report 6601642-5 (Version None)
Quarter: 2010Q1

REPORT INFORMATION
  Report Type: 
  Country: None (occurrence: None)
  Receive Date: 20100218
  Receipt Date: 20100127
  Transmission Date: 20100710
  Serious: Yes (Hospitalization, Other)
  Sender: FDA-Public Use
  Company Number: 2009AC000443

PATIENT
  Age: 74 Year
  Sex: Male

DRUGS (43)
  1. DIGOXIN [Suspect]
     Dosage: 0.25 MG;UNK;PO
     Route: 048
     Dates: start: 20060801, end: 20060901
  2. DIGOXIN [Suspect]
     Dosage: 0.125 MG;UNKNOWN;PO
     Route: 048
     Dates: start: 20060901
  3. CARVEDILOL [Concomitant]
  4. FUROSEMIDE [Concomitant]
  5. RAMIPRIL [Concomitant]
  6. ASPIRIN [Concomitant]
  7. PERCOCET [Concomitant]
  8. ALTACE [Concomitant]
  9. POTASSIUM [Concomitant]
  10. COREG [Concomitant]
  11. FLOMAX [Concomitant]
  12. VESICARE [Concomitant]
  13. NEXIUM [Concomitant]
  14. OXYCODONE [Concomitant]
  15. CYCLOBENZAPRINE [Concomitant]
  16. LOTREL [Concomitant]
  17. ATENOLOL [Concomitant]
  18. JANTOVEN [Concomitant]
  19. DILTIAZEM HCL [Concomitant]
  20. SORINE [Concomitant]
  21. ALTACE [Concomitant]
  22. COREG [Concomitant]
  23. FUROSEMIDE [Concomitant]
  24. CIPROFLOXACIN [Concomitant]
  25. SPIRONOLACTIN [Concomitant]
  26. SPIRONOLACTONE [Concomitant]
  27. POTASSIUM CHLORIDE [Concomitant]
  28. MINITRAN [Concomitant]
  29. NIFEDIPINE [Concomitant]
  30. KLOR-CON [Concomitant]
  31. SOTALOL [Concomitant]
  32. CARVEDILOL [Concomitant]
  33. PROCARDIA [Concomitant]
  34. CARISOPRODOL [Concomitant]
  35. FLOMAX [Concomitant]
  36. VESICARE [Concomitant]
  37. FUROSEMIDE [Concomitant]
  38. VESICARE [Concomitant]
  39. FUROSEMIDE [Concomitant]
  40. SPIRONOLACTONE [Concomitant]
  41. OXYCONTIN [Concomitant]
  42. OXYCODONE [Concomitant]
  43. LOTENSIN [Concomitant]

REACTIONS (19)
  - ATRIAL FIBRILLATION [None]
  - CARDIAC FAILURE [None]
  - CARDIAC FAILURE CONGESTIVE [None]
  - CARDIOMEGALY [None]
  - CARDIOMYOPATHY [None]
  - CHRONIC OBSTRUCTIVE PULMONARY DISEASE [None]
  - DIZZINESS [None]
  - ECONOMIC PROBLEM [None]
  - EMPHYSEMA [None]
  - FLUID RETENTION [None]
  - HEART RATE DECREASED [None]
  - HYPERTENSION [None]
  - LOSS OF CONSCIOUSNESS [None]
  - MULTIPLE INJURIES [None]
  - OBESITY [None]
  - RENAL CYST [None]
  - RENAL FAILURE [None]
  - SURGERY [None]
  - THERAPEUTIC AGENT TOXICITY [None]
